FAERS Safety Report 16867144 (Version 1)
Quarter: 2019Q3

REPORT INFORMATION
  Report Type: Other
  Country: US (occurrence: US)
  Receive Date: 20190930
  Receipt Date: 20190930
  Transmission Date: 20191005
  Serious: Yes (Death)
  Sender: FDA-Public Use
  Company Number: US-KNIGHT THERAPEUTICS (USA) INC.-2075056

PATIENT
  Age: 27 Year
  Sex: Male

DRUGS (6)
  1. IMPAVIDO [Suspect]
     Active Substance: MILTEFOSINE
     Indication: ACANTHAMOEBA INFECTION
  2. FLUCYTOSINE. [Concomitant]
     Active Substance: FLUCYTOSINE
  3. FLUCONAZOLE. [Concomitant]
     Active Substance: FLUCONAZOLE
  4. PENTAMIDINE ISETHIONATE. [Concomitant]
     Active Substance: PENTAMIDINE ISETHIONATE
  5. AZITHROMYCIN ANHYDROUS. [Concomitant]
     Active Substance: AZITHROMYCIN ANHYDROUS
  6. SULFADIAZINE. [Concomitant]
     Active Substance: SULFADIAZINE

REACTIONS (2)
  - Drug ineffective for unapproved indication [Fatal]
  - Off label use [Unknown]
